FAERS Safety Report 4928238-5 (Version None)
Quarter: 2006Q1

REPORT INFORMATION
  Report Type: 
  Country: None (occurrence: None)
  Receive Date: 20060223
  Receipt Date: 20060222
  Transmission Date: 20060701
  Serious: No
  Sender: FDA-Public Use
  Company Number: US-2005-021638

PATIENT
  Sex: Female

DRUGS (1)
  1. CLIMARA [Suspect]
     Indication: HORMONE REPLACEMENT THERAPY
     Dosage: 0.06 MG/D, CONT, TRANSDERMAL
     Route: 062
     Dates: start: 20050501

REACTIONS (2)
  - BUNION [None]
  - CONDITION AGGRAVATED [None]
